FAERS Safety Report 15652021 (Version 2)
Quarter: 2020Q3

REPORT INFORMATION
  Report Type: Spontaneous
  Country: US (occurrence: US)
  Receive Date: 20181123
  Receipt Date: 20200821
  Transmission Date: 20201102
  Serious: Yes (Other)
  Sender: FDA-Public Use
  Company Number: US-GILEAD-2018-0375841

PATIENT
  Age: 46 Year
  Sex: Male
  Weight: 62.59 kg

DRUGS (28)
  1. TRUVADA [Suspect]
     Active Substance: EMTRICITABINE\TENOFOVIR DISOPROXIL FUMARATE
     Indication: HIV INFECTION
     Dosage: UNK
     Route: 048
     Dates: start: 20110903, end: 20140716
  2. PRAVASTATIN. [Concomitant]
     Active Substance: PRAVASTATIN
  3. ZIAGEN [Concomitant]
     Active Substance: ABACAVIR SULFATE
  4. LISINOPRIL. [Concomitant]
     Active Substance: LISINOPRIL
  5. TRAMADOL. [Concomitant]
     Active Substance: TRAMADOL
  6. ASPIRIN [ACETYLSALICYLIC ACID] [Concomitant]
     Active Substance: ASPIRIN
  7. CALTATE [Concomitant]
  8. VENTOLIN [Concomitant]
     Active Substance: ALBUTEROL SULFATE
  9. METOPROLOL. [Concomitant]
     Active Substance: METOPROLOL
  10. POTASSIUM [Concomitant]
     Active Substance: POTASSIUM
  11. PROAIR HFA [Concomitant]
     Active Substance: ALBUTEROL SULFATE
  12. PLAVIX [Concomitant]
     Active Substance: CLOPIDOGREL BISULFATE
  13. ADVAIR HFA [Concomitant]
     Active Substance: FLUTICASONE PROPIONATE\SALMETEROL XINAFOATE
  14. CHANTIX [Concomitant]
     Active Substance: VARENICLINE TARTRATE
  15. NORVIR [Concomitant]
     Active Substance: RITONAVIR
  16. VIREAD [Suspect]
     Active Substance: TENOFOVIR DISOPROXIL FUMARATE
     Indication: HIV INFECTION
     Dosage: UNK
     Route: 048
     Dates: start: 200902, end: 201109
  17. GENVOYA [Concomitant]
     Active Substance: COBICISTAT\ELVITEGRAVIR\EMTRICITABINE\TENOFOVIR ALAFENAMIDE FUMARATE
  18. CRIXIVAN [Concomitant]
     Active Substance: INDINAVIR SULFATE
  19. VALACYCLOVIR [Concomitant]
     Active Substance: VALACYCLOVIR HYDROCHLORIDE
  20. ZOFRAN [Concomitant]
     Active Substance: ONDANSETRON HYDROCHLORIDE
  21. RANITIDINE. [Concomitant]
     Active Substance: RANITIDINE
  22. IRON [Concomitant]
     Active Substance: IRON
  23. STRIBILD [Suspect]
     Active Substance: COBICISTAT\ELVITEGRAVIR\EMTRICITABINE\TENOFOVIR DISOPROXIL FUMARATE
     Indication: HIV INFECTION
     Dosage: UNK
     Route: 048
     Dates: start: 20140625, end: 20151111
  24. REYATAZ [Concomitant]
     Active Substance: ATAZANAVIR SULFATE
  25. TRILIPIX [Concomitant]
     Active Substance: FENOFIBRIC ACID
  26. ATORVASTATIN [Concomitant]
     Active Substance: ATORVASTATIN
  27. CARVEDILOL. [Concomitant]
     Active Substance: CARVEDILOL
  28. GABAPENTIN. [Concomitant]
     Active Substance: GABAPENTIN

REACTIONS (11)
  - Osteoporosis [Unknown]
  - Anhedonia [Unknown]
  - Acute kidney injury [Not Recovered/Not Resolved]
  - Bone density decreased [Unknown]
  - Blood creatinine abnormal [Unknown]
  - Spinal fracture [Not Recovered/Not Resolved]
  - Emotional distress [Unknown]
  - Anxiety [Unknown]
  - Glomerular filtration rate abnormal [Unknown]
  - Pain [Unknown]
  - Economic problem [Unknown]

NARRATIVE: CASE EVENT DATE: 20140728
